FAERS Safety Report 15781799 (Version 1)
Quarter: 2019Q1

REPORT INFORMATION
  Report Type: Other
  Country: NL (occurrence: NL)
  Receive Date: 20190102
  Receipt Date: 20190102
  Transmission Date: 20190417
  Serious: Yes (Death)
  Sender: FDA-Public Use
  Company Number: NL-APOTEX-2018AP028370

PATIENT
  Sex: Male

DRUGS (11)
  1. ACENOCOUMAROL [Concomitant]
     Active Substance: ACENOCOUMAROL
     Indication: PRODUCT USED FOR UNKNOWN INDICATION
     Dosage: 1 X DAAGS VOLGENS LIJST TROMBOSEDIENST
     Route: 065
     Dates: start: 20170224
  2. PRIMPERAN [Concomitant]
     Active Substance: METOCLOPRAMIDE HYDROCHLORIDE
     Indication: PRODUCT USED FOR UNKNOWN INDICATION
     Dosage: ZONODIG 2 X DAAGS 1
     Route: 065
  3. PANTOPRAZOL                        /01263201/ [Concomitant]
     Active Substance: PANTOPRAZOLE
     Indication: PRODUCT USED FOR UNKNOWN INDICATION
     Dosage: 20 MG, QD (1 DD 1)
     Route: 065
     Dates: start: 20170224
  4. AMOXICILLIN/CLAVULANIC ACID [Suspect]
     Active Substance: AMOXICILLIN\CLAVULANIC ACID
     Indication: URINARY TRACT INFECTION
     Dosage: Q.8H, (3X PER DAG 1 TABLET)
     Route: 065
     Dates: start: 20181002
  5. PARACETAMOL [Concomitant]
     Active Substance: ACETAMINOPHEN
     Indication: PRODUCT USED FOR UNKNOWN INDICATION
     Dosage: 1000 MG, Q.6H (3 DD 2)
     Route: 065
  6. DERMOVATE [Concomitant]
     Active Substance: CLOBETASOL
     Indication: PRODUCT USED FOR UNKNOWN INDICATION
     Dosage: 1 DF, QD (1 DD 1 GRAM DUN SMEREN OP MEEST AANGEDANE HUIDPLEKKEN)
     Route: 065
  7. RISPERIDON [Concomitant]
     Active Substance: RISPERIDONE
     Indication: PRODUCT USED FOR UNKNOWN INDICATION
     Dosage: 0.00 MG, QD (1 DD 0.5 STUKS)
     Route: 065
     Dates: start: 20180611
  8. COLECALCIFEROL [Concomitant]
     Active Substance: CHOLECALCIFEROL
     Indication: PRODUCT USED FOR UNKNOWN INDICATION
     Dosage: 800 IU, QD (1 DD 1)
     Route: 065
     Dates: start: 20180205
  9. METOPROLOL. [Concomitant]
     Active Substance: METOPROLOL
     Indication: PRODUCT USED FOR UNKNOWN INDICATION
     Dosage: 25 MG, QD (1 DD 1)
     Route: 065
     Dates: start: 20170224
  10. NOVORAPID [Concomitant]
     Active Substance: INSULIN ASPART
     Indication: PRODUCT USED FOR UNKNOWN INDICATION
     Dosage: IN OVERLEG MET ARTS
     Route: 065
  11. PARACETAMOL [Concomitant]
     Active Substance: ACETAMINOPHEN
     Indication: PRODUCT USED FOR UNKNOWN INDICATION
     Dosage: (3 DD 1 ; 1000 HOUR)
     Route: 065

REACTIONS (5)
  - Somnolence [Unknown]
  - Haematoma [Fatal]
  - Lip swelling [Unknown]
  - Skin discolouration [Fatal]
  - Vasculitis [Fatal]
